FAERS Safety Report 8386252 (Version 3)
Quarter: 2013Q2

REPORT INFORMATION
  Report Type: Spontaneous
  Country: US (occurrence: US)
  Receive Date: 20120202
  Receipt Date: 20130424
  Transmission Date: 20140414
  Serious: Yes (Death)
  Sender: FDA-Public Use
  Company Number: US-GLAXOSMITHKLINE-A0845699A

PATIENT
  Age: 63 Year
  Sex: Male
  Weight: 167 kg

DRUGS (4)
  1. AVANDIA [Suspect]
     Indication: DIABETES MELLITUS
     Dosage: 8MG PER DAY
     Route: 048
     Dates: start: 2001, end: 2007
  2. GLYBURIDE [Concomitant]
  3. TERAZOSIN [Concomitant]
  4. PREDNISONE [Concomitant]

REACTIONS (2)
  - Sudden death [Fatal]
  - Cardio-respiratory arrest [Fatal]
